FAERS Safety Report 11799147 (Version 1)
Quarter: 2015Q4

REPORT INFORMATION
  Report Type: Report from Study
  Country: CN (occurrence: CN)
  Receive Date: 20151203
  Receipt Date: 20151203
  Transmission Date: 20160305
  Serious: Yes (Hospitalization, Other)
  Sender: FDA-Public Use
  Company Number: CN-GILEAD-2015-0185873

PATIENT
  Age: 30 Year
  Sex: Male

DRUGS (2)
  1. ADEFOVIR DIPIVOXIL. [Suspect]
     Active Substance: ADEFOVIR DIPIVOXIL
     Indication: CHRONIC HEPATITIS B
     Dosage: 10 MG, UNK
     Route: 065
  2. POTASSIUM CITRATE. [Concomitant]
     Active Substance: POTASSIUM CITRATE
     Indication: SUPPLEMENTATION THERAPY
     Route: 065

REACTIONS (7)
  - Paralysis [Unknown]
  - Fanconi syndrome acquired [Unknown]
  - Dry mouth [Unknown]
  - Polydipsia [Unknown]
  - Chest pain [Unknown]
  - Pain in extremity [Unknown]
  - Osteomalacia [Unknown]

NARRATIVE: CASE EVENT DATE: 201312
